FAERS Safety Report 14334106 (Version 1)
Quarter: 2017Q4

REPORT INFORMATION
  Report Type: Spontaneous
  Country: FR (occurrence: FR)
  Receive Date: 20171228
  Receipt Date: 20171228
  Transmission Date: 20180321
  Serious: Yes (Hospitalization)
  Sender: FDA-Public Use
  Company Number: FR-TEVA-2017-FR-836213

PATIENT
  Age: 76 Year
  Sex: Male
  Weight: 56.5 kg

DRUGS (11)
  1. INSULINE [Concomitant]
     Active Substance: INSULIN NOS
  2. METFORMIN [Suspect]
     Active Substance: METFORMIN HYDROCHLORIDE
     Indication: DIABETES MELLITUS
     Route: 048
     Dates: start: 20170920, end: 20170928
  3. MOVICOL [Concomitant]
     Active Substance: POLYETHYLENE GLYCOL 3350\POTASSIUM CHLORIDE\SODIUM BICARBONATE\SODIUM CHLORIDE
  4. FRAGMINE [Concomitant]
     Active Substance: DALTEPARIN SODIUM
  5. DOMPERIDONE ARROW [Suspect]
     Active Substance: DOMPERIDONE
     Indication: NAUSEA
     Route: 048
     Dates: start: 20170922, end: 20170928
  6. DUALKOPT [Concomitant]
     Active Substance: DORZOLAMIDE HYDROCHLORIDE\TIMOLOL MALEATE
  7. MONO TILDIEM LP 200 MG, PROLONGED-RELEASE CAPSULE [Suspect]
     Active Substance: DILTIAZEM HYDROCHLORIDE
     Indication: HYPERTENSION
     Route: 048
     Dates: start: 20170914, end: 20170928
  8. KARDEGIC [Suspect]
     Active Substance: ASPIRIN DL-LYSINE
     Indication: CARDIOVASCULAR EVENT PROPHYLAXIS
     Route: 048
     Dates: start: 20170915, end: 20170926
  9. LUMIGAN [Suspect]
     Active Substance: BIMATOPROST
     Indication: GLAUCOMA
     Route: 047
     Dates: start: 20170912, end: 20170928
  10. NORMACOL [Concomitant]
     Active Substance: HERBALS\KARAYA GUM
  11. LEVOFLOXACINE MYLAN [Suspect]
     Active Substance: LEVOFLOXACIN
     Indication: CHRONIC OBSTRUCTIVE PULMONARY DISEASE
     Route: 048
     Dates: start: 20170921, end: 20170925

REACTIONS (5)
  - Pruritus [Recovered/Resolved]
  - Leukocytosis [None]
  - Rash [Recovered/Resolved]
  - Eosinophilia [None]
  - Monocyte count increased [None]

NARRATIVE: CASE EVENT DATE: 20170924
